FAERS Safety Report 5966923-7 (Version None)
Quarter: 2008Q4

REPORT INFORMATION
  Report Type: 
  Country: None (occurrence: None)
  Receive Date: 20081125
  Receipt Date: 20081021
  Transmission Date: 20090506
  Serious: No
  Sender: FDA-Public Use
  Company Number: US-AMGEN-KDL314867

PATIENT
  Sex: Female

DRUGS (2)
  1. ENBREL [Suspect]
     Indication: JUVENILE ARTHRITIS
     Route: 058
     Dates: start: 20080916
  2. METHOTREXATE [Concomitant]
     Route: 030

REACTIONS (3)
  - DECREASED APPETITE [None]
  - URINE OUTPUT DECREASED [None]
  - VOMITING [None]
